FAERS Safety Report 18206719 (Version 1)
Quarter: 2020Q3

REPORT INFORMATION
  Report Type: Spontaneous
  Country: US (occurrence: US)
  Receive Date: 20200828
  Receipt Date: 20200828
  Transmission Date: 20201103
  Serious: Yes (Death, Hospitalization)
  Sender: FDA-Public Use
  Company Number: US-HORIZON-KRY-1213-2020

PATIENT
  Age: 54 Year
  Sex: Male

DRUGS (3)
  1. ISSENTRIS [Concomitant]
  2. KRYSTEXXA [Suspect]
     Active Substance: PEGLOTICASE
     Indication: PRODUCT USED FOR UNKNOWN INDICATION
     Dosage: 8MG EVERY 2 WEEKS
     Dates: end: 201911
  3. DESCOVY [Concomitant]
     Active Substance: EMTRICITABINE\TENOFOVIR ALAFENAMIDE FUMARATE

REACTIONS (4)
  - Blood pressure decreased [Unknown]
  - Dependence on respirator [Fatal]
  - Heart rate decreased [Unknown]
  - Oedema [Unknown]
